FAERS Safety Report 9166777 (Version 1)
Quarter: 2012Q4

REPORT INFORMATION
  Report Type: 
  Country: US (occurrence: US)
  Receive Date: 20121120
  Receipt Date: 20121120
  Transmission Date: 20130627
  Serious: Yes (Other)
  Sender: FDA-Public Use
  Company Number: US-RB-046846-12

PATIENT
  Age: 0 None
  Sex: Female

DRUGS (4)
  1. SUBOXONE UNSPECIFIED [Suspect]
     Indication: PRODUCT USED FOR UNKNOWN INDICATION
     Route: 064
     Dates: start: 20110813, end: 201201
  2. BUPRENORPHINE [Suspect]
     Indication: PRODUCT USED FOR UNKNOWN INDICATION
     Route: 064
     Dates: start: 201201, end: 20120430
  3. PRENATAL VITAMINS [Suspect]
     Indication: PREGNANCY
     Route: 064
     Dates: start: 20110901, end: 20120430
  4. FOLIC ACID [Suspect]
     Indication: VITAMIN SUPPLEMENTATION
     Route: 064
     Dates: start: 20110901, end: 20120430

REACTIONS (2)
  - Foetal exposure during pregnancy [Recovered/Resolved]
  - Low birth weight baby [Unknown]
